FAERS Safety Report 14151689 (Version 1)
Quarter: 2017Q4

REPORT INFORMATION
  Report Type: Spontaneous
  Country: US (occurrence: None)
  Receive Date: 20171101
  Receipt Date: 20171101
  Transmission Date: 20180321
  Serious: Yes (Life-Threatening, Hospitalization)
  Sender: FDA-Public Use
  Company Number: None

PATIENT
  Age: 52 Year
  Sex: Female
  Weight: 94.35 kg

DRUGS (1)
  1. GADOBUTROL [Suspect]
     Active Substance: GADOBUTROL
     Indication: SCAN WITH CONTRAST
     Route: 042
     Dates: start: 20171027, end: 20171027

REACTIONS (5)
  - Hypotension [None]
  - Respiratory depression [None]
  - Anaphylactic reaction [None]
  - Atrial fibrillation [None]
  - Cardiac arrest [None]

NARRATIVE: CASE EVENT DATE: 20171027
